FAERS Safety Report 22087853 (Version 1)
Quarter: 2023Q1

REPORT INFORMATION
  Report Type: Spontaneous
  Country: US (occurrence: None)
  Receive Date: 20230313
  Receipt Date: 20230313
  Transmission Date: 20230418
  Serious: Yes (Other)
  Sender: FDA-Public Use
  Company Number: US-ROCHE-3300212

PATIENT

DRUGS (2)
  1. TECENTRIQ [Suspect]
     Active Substance: ATEZOLIZUMAB
     Indication: Non-small cell lung cancer metastatic
     Dosage: UNKNOWN
     Route: 065
  2. TECENTRIQ [Suspect]
     Active Substance: ATEZOLIZUMAB
     Indication: Adrenal gland cancer

REACTIONS (8)
  - Hyperhidrosis [Unknown]
  - Asthenia [Unknown]
  - Dyspnoea [Unknown]
  - Metastatic neoplasm [Unknown]
  - Adrenomegaly [Unknown]
  - Platelet count decreased [Unknown]
  - Off label use [Unknown]
  - Facial pain [Unknown]
